FAERS Safety Report 5044177-6 (Version None)
Quarter: 2006Q3

REPORT INFORMATION
  Report Type: 
  Country: None (occurrence: None)
  Receive Date: 20060706
  Receipt Date: 20010206
  Transmission Date: 20061208
  Serious: Yes (Other)
  Sender: FDA-Public Use
  Company Number: GB-ROCHE-254235

PATIENT
  Age: 26 Year
  Sex: Male

DRUGS (8)
  1. MYCOPHENOLATE MOFETIL [Suspect]
     Route: 065
  2. MYCOPHENOLATE MOFETIL [Suspect]
     Route: 065
  3. MYCOPHENOLATE MOFETIL [Suspect]
     Route: 065
  4. METHYLPREDNISOLONE [Concomitant]
     Route: 042
  5. NYSTATIN [Concomitant]
  6. CO-TRIMOXAZOLE [Concomitant]
  7. ACYCLOVIR [Concomitant]
  8. TACROLIMUS [Concomitant]

REACTIONS (4)
  - DRUG TOXICITY [None]
  - NEUTROPHIL MORPHOLOGY ABNORMAL [None]
  - TRANSPLANT REJECTION [None]
  - WHITE BLOOD CELL COUNT DECREASED [None]
